FAERS Safety Report 13870139 (Version 2)
Quarter: 2017Q4

REPORT INFORMATION
  Report Type: Spontaneous
  Country: CZ (occurrence: CZ)
  Receive Date: 20170815
  Receipt Date: 20171205
  Transmission Date: 20180320
  Serious: Yes (Hospitalization, Disabling, Other)
  Sender: FDA-Public Use
  Company Number: CZ-LUNDBECK-DKLU2035652

PATIENT
  Sex: Female

DRUGS (18)
  1. EUTHYROX [Suspect]
     Active Substance: LEVOTHYROXINE SODIUM
     Indication: THYROID DISORDER
     Route: 065
     Dates: start: 200204, end: 2007
  2. DALACIN [Suspect]
     Active Substance: CLINDAMYCIN
     Indication: DENTAL CARE
     Route: 065
     Dates: start: 2012, end: 2012
  3. PANGROL [Suspect]
     Active Substance: PANCRELIPASE
     Indication: ABDOMINAL DISCOMFORT
  4. MIABENE [Concomitant]
     Active Substance: MIANSERIN HYDROCHLORIDE
     Indication: PRODUCT USED FOR UNKNOWN INDICATION
     Route: 065
  5. TRITTICO [Concomitant]
     Active Substance: TRAZODONE HYDROCHLORIDE
     Indication: PRODUCT USED FOR UNKNOWN INDICATION
     Route: 065
     Dates: start: 201405, end: 201405
  6. FRISIUM [Suspect]
     Active Substance: CLOBAZAM
     Indication: PRODUCT USED FOR UNKNOWN INDICATION
     Route: 048
     Dates: start: 20140117
  7. VALDOXAN [Suspect]
     Active Substance: AGOMELATINE
     Indication: IRRITABLE BOWEL SYNDROME
     Route: 065
     Dates: start: 20131216, end: 20131227
  8. AMITRIPTYLIN [Suspect]
     Active Substance: AMITRIPTYLINE
     Indication: PRODUCT USED FOR UNKNOWN INDICATION
     Route: 048
     Dates: start: 20140117
  9. HELICID [Suspect]
     Active Substance: OMEPRAZOLE
     Indication: GASTROINTESTINAL PAIN
     Route: 065
     Dates: start: 201311
  10. AMITRIPTYLIN [Suspect]
     Active Substance: AMITRIPTYLINE
     Route: 048
  11. AMITRIPTYLIN [Suspect]
     Active Substance: AMITRIPTYLINE
     Route: 048
     Dates: end: 20140309
  12. PANZYNORM [Suspect]
     Active Substance: PANCRELIPASE
     Indication: PRODUCT USED FOR UNKNOWN INDICATION
     Route: 065
  13. PANGROL [Suspect]
     Active Substance: PANCRELIPASE
     Indication: ABDOMINAL DISCOMFORT
     Route: 065
     Dates: start: 2013
  14. LETROX [Concomitant]
     Active Substance: LEVOTHYROXINE SODIUM
     Indication: PRODUCT USED FOR UNKNOWN INDICATION
     Route: 065
     Dates: start: 2007, end: 2007
  15. PANCREOLAN FORTE [Suspect]
     Active Substance: DIASTASE\LIPASE\PROTEASE
     Indication: PRODUCT USED FOR UNKNOWN INDICATION
     Route: 065
  16. VERAL (DICLOFENAC SODIUM) [Suspect]
     Active Substance: DICLOFENAC SODIUM
     Indication: PRODUCT USED FOR UNKNOWN INDICATION
     Route: 065
  17. SULPIRIDE [Suspect]
     Active Substance: SULPIRIDE
     Indication: SOMATIC SYMPTOM DISORDER
     Route: 065
     Dates: start: 20131228, end: 20140126
  18. SULPIRIDE [Suspect]
     Active Substance: SULPIRIDE
     Indication: SOMATIC SYMPTOM DISORDER

REACTIONS (8)
  - Abnormal loss of weight [Unknown]
  - Medication error [Unknown]
  - Lactose intolerance [Unknown]
  - Abdominal pain lower [Unknown]
  - Abdominal pain upper [Unknown]
  - Flatulence [Unknown]
  - Abnormal dreams [Recovered/Resolved]
  - Feeding disorder [Unknown]

NARRATIVE: CASE EVENT DATE: 2001
